FAERS Safety Report 5066973-1 (Version None)
Quarter: 2006Q3

REPORT INFORMATION
  Report Type: 
  Country: None (occurrence: None)
  Receive Date: 20060726
  Receipt Date: 20060713
  Transmission Date: 20061208
  Serious: Yes (Death, Other)
  Sender: FDA-Public Use
  Company Number: 2006JP002209

PATIENT
  Age: 54 Year
  Sex: Female
  Weight: 46.5 kg

DRUGS (16)
  1. FUNGUARD (MICAFUNGIN INJECTION) [Suspect]
     Indication: FUNGAL INFECTION
     Dosage: 150 MG UNKNOWN/D, IV DRIP
     Route: 041
     Dates: start: 20060307, end: 20060326
  2. PROGRAF [Suspect]
  3. DIFLUCAN [Concomitant]
  4. LEVOFLOXACIN [Concomitant]
  5. ZOVIRAX [Concomitant]
  6. MAXIPINE (CEFEPIME HYDROCHLORIDE) [Concomitant]
  7. TOBRAMYCIN SULFATE [Concomitant]
  8. MEROPEN (MEROPENEM) [Concomitant]
  9. TARGOCID [Concomitant]
  10. ACYCLOVIR [Concomitant]
  11. MAGNESIUM SULFATE (MAGESIUM SULFATE) [Concomitant]
  12. NEUPOGEN [Concomitant]
  13. OMEPRAZOLE [Concomitant]
  14. MORPHINE HYDROCHLORIDE (MORPHINE HYDROCHLORIDE) INJECTION [Concomitant]
  15. KCL (POTASSIUM CHLORIDE) INJECTION [Concomitant]
  16. HUMULIN R (INSULN HUMAN) INJECTION [Concomitant]

REACTIONS (10)
  - BLOOD ALKALINE PHOSPHATASE INCREASED [None]
  - BLOOD LACTATE DEHYDROGENASE INCREASED [None]
  - CEREBRAL HAEMORRHAGE [None]
  - GAMMA-GLUTAMYLTRANSFERASE INCREASED [None]
  - LIVER DISORDER [None]
  - OEDEMA GENITAL [None]
  - RASH ERYTHEMATOUS [None]
  - STOMATITIS [None]
  - TREMOR [None]
  - VULVOVAGINAL DISCOMFORT [None]
